FAERS Safety Report 10231195 (Version 4)
Quarter: 2018Q1

REPORT INFORMATION
  Report Type: Spontaneous
  Country: JP (occurrence: JP)
  Receive Date: 20140611
  Receipt Date: 20180109
  Transmission Date: 20180508
  Serious: Yes (Death)
  Sender: FDA-Public Use
  Company Number: JP-BRACCO-008157

PATIENT
  Age: 6 Year
  Sex: Female

DRUGS (5)
  1. LAC-B [Concomitant]
     Active Substance: BIFIDOBACTERIUM SPP.
     Dosage: UNK
     Dates: start: 20140531
  2. SOLITA-T3 [Concomitant]
     Active Substance: POTASSIUM CHLORIDE\SODIUM CHLORIDE\SODIUM LACTATE
     Dosage: UNK
     Dates: start: 20140529, end: 20140603
  3. FLUMARIN [Concomitant]
     Active Substance: FLOMOXEF SODIUM
     Dosage: UNK
     Route: 042
     Dates: start: 20140529
  4. IOPAMIRON [Suspect]
     Active Substance: IOPAMIDOL
     Indication: UROGRAM
     Dosage: 15 ML, SINGLE
     Route: 042
     Dates: start: 20140603, end: 20140603
  5. KLARICID [Concomitant]
     Active Substance: CLARITHROMYCIN
     Dosage: UNK
     Dates: start: 20140529

REACTIONS (1)
  - Anaphylactic shock [Fatal]

NARRATIVE: CASE EVENT DATE: 20140603
